FAERS Safety Report 14093965 (Version 1)
Quarter: 2017Q4

REPORT INFORMATION
  Report Type: Spontaneous
  Country: US (occurrence: US)
  Receive Date: 20171016
  Receipt Date: 20171016
  Transmission Date: 20180321
  Serious: Yes (Death, Hospitalization, Other)
  Sender: FDA-Public Use
  Company Number: US-BAYER-2017-195841

PATIENT
  Age: 55 Year
  Sex: Female

DRUGS (9)
  1. CIPROFLOXACIN. [Suspect]
     Active Substance: CIPROFLOXACIN
     Dosage: UNK
  2. ETOMIDATE. [Concomitant]
     Active Substance: ETOMIDATE
     Indication: CORTISOL INCREASED
  3. CEFUROXIME. [Suspect]
     Active Substance: CEFUROXIME
     Indication: INFECTION PROPHYLAXIS
     Dosage: UNK
  4. MEROPENEM. [Suspect]
     Active Substance: MEROPENEM
     Indication: MENINGITIS BACTERIAL
     Dosage: 3 WEEK
  5. METRONIDAZOLE. [Suspect]
     Active Substance: METRONIDAZOLE
     Indication: INFECTION PROPHYLAXIS
     Dosage: UNK
  6. HYDROCORTONE [Suspect]
     Active Substance: HYDROCORTISONE
     Indication: ADENOMA BENIGN
     Dosage: 50 MG, TID
     Route: 048
  7. HYDROCORTONE [Suspect]
     Active Substance: HYDROCORTISONE
     Indication: ADENOMA BENIGN
     Dosage: 50 MG, BID
     Route: 048
  8. FLUORESCEIN [Concomitant]
     Active Substance: FLUORESCEIN
     Dosage: UNK
     Route: 037
  9. HYDROCORTONE [Suspect]
     Active Substance: HYDROCORTISONE
     Indication: ADENOMA BENIGN
     Dosage: 50 MG, QID
     Route: 048

REACTIONS (2)
  - Meningitis candida [Fatal]
  - Product use in unapproved indication [Unknown]
